FAERS Safety Report 6792970-1 (Version None)
Quarter: 2010Q2

REPORT INFORMATION
  Report Type: 
  Country: None (occurrence: None)
  Receive Date: 20100624
  Receipt Date: 20090120
  Transmission Date: 20101027
  Serious: No
  Sender: FDA-Public Use
  Company Number: US-PFIZER INC-2008089578

PATIENT
  Sex: Female
  Weight: 85.5 kg

DRUGS (2)
  1. DEPO-PROVERA SUSPENSION/INJ [Suspect]
     Indication: CONTRACEPTION
     Dosage: 150 MG, UNK
     Route: 030
     Dates: start: 20040101
  2. DEPO-PROVERA SUSPENSION/INJ [Suspect]
     Indication: MENORRHAGIA

REACTIONS (1)
  - LOW DENSITY LIPOPROTEIN INCREASED [None]
